FAERS Safety Report 15235566 (Version 6)
Quarter: 2019Q2

REPORT INFORMATION
  Report Type: Spontaneous
  Country: US (occurrence: US)
  Receive Date: 20180803
  Receipt Date: 20190425
  Transmission Date: 20190711
  Serious: No
  Sender: FDA-Public Use
  Company Number: US-PFIZER INC-2018312538

PATIENT
  Age: 13 Year
  Sex: Male
  Weight: 48 kg

DRUGS (3)
  1. LYRICA [Suspect]
     Active Substance: PREGABALIN
     Indication: MUSCULAR DYSTROPHY
     Dosage: 100 MG, 3X/DAY (100 MG, 1 CAPSULE THREE TIMES A DAY)
     Route: 048
     Dates: start: 201806
  2. LYRICA [Suspect]
     Active Substance: PREGABALIN
     Dosage: 100 MG, 3X/DAY
     Route: 048
  3. LYRICA [Suspect]
     Active Substance: PREGABALIN
     Dosage: 25 MG, 3X/DAY [TAKE 1 CAPSULE ORALLY TID ALONG WITH LYRICA 100 MG CAPSULE TID]
     Route: 048

REACTIONS (2)
  - Drug effective for unapproved indication [Unknown]
  - Product use issue [Unknown]

NARRATIVE: CASE EVENT DATE: 201806
